FAERS Safety Report 5166680-0 (Version None)
Quarter: 2006Q4

REPORT INFORMATION
  Report Type: 
  Country: None (occurrence: None)
  Receive Date: 20061201
  Receipt Date: 20061201
  Transmission Date: 20070319
  Serious: Yes (Hospitalization)
  Sender: FDA-Public Use
  Company Number: None

PATIENT
  Age: 21 Year
  Sex: Female
  Weight: 99.3377 kg

DRUGS (4)
  1. GEODON [Suspect]
     Indication: PSYCHOTIC DISORDER
     Dosage: 80MG  BID PO
     Route: 048
     Dates: start: 20060809, end: 20061016
  2. KEPPRA [Concomitant]
  3. SYNTHROID [Concomitant]
  4. DDAVD [Concomitant]

REACTIONS (3)
  - MUSCULOSKELETAL STIFFNESS [None]
  - NEUROLEPTIC MALIGNANT SYNDROME [None]
  - PHARYNGOLARYNGEAL PAIN [None]
